FAERS Safety Report 23750150 (Version 1)
Quarter: 2024Q2

REPORT INFORMATION
  Report Type: Spontaneous
  Country: CN (occurrence: CN)
  Receive Date: 20240417
  Receipt Date: 20240417
  Transmission Date: 20240717
  Serious: Yes (Other)
  Sender: FDA-Public Use
  Company Number: CN-Jiangsu Hengrui Medicine Co., Ltd.-2155635

PATIENT
  Age: 77 Year
  Sex: Female
  Weight: 50 kg

DRUGS (4)
  1. FONDAPARINUX SODIUM [Suspect]
     Active Substance: FONDAPARINUX SODIUM
     Indication: Thrombosis prophylaxis
     Route: 058
     Dates: start: 20240229, end: 20240301
  2. RIVAROXABAN [Suspect]
     Active Substance: RIVAROXABAN
     Dates: start: 20240302, end: 20240303
  3. ASPIRIN [Suspect]
     Active Substance: ASPIRIN
     Dates: start: 20240226, end: 20240305
  4. PLAVIX [Suspect]
     Active Substance: CLOPIDOGREL BISULFATE
     Route: 048
     Dates: start: 20240226, end: 20240311

REACTIONS (3)
  - Henoch-Schonlein purpura [Recovering/Resolving]
  - Haemorrhage subcutaneous [Recovering/Resolving]
  - Occult blood positive [Recovering/Resolving]

NARRATIVE: CASE EVENT DATE: 20240303
